FAERS Safety Report 18947112 (Version 1)
Quarter: 2021Q1

REPORT INFORMATION
  Report Type: Spontaneous
  Country: AU (occurrence: AU)
  Receive Date: 20210226
  Receipt Date: 20210226
  Transmission Date: 20210420
  Serious: Yes (Life-Threatening, Other)
  Sender: FDA-Public Use
  Company Number: AU-PFIZER INC-2021175103

PATIENT
  Age: 79 Year
  Sex: Male

DRUGS (4)
  1. NORADRENALINE (NORPINEPHRINE) [Concomitant]
     Active Substance: NOREPINEPHRINE
     Dosage: 0.09 UG/KG
  2. EPINEPHRINE. [Suspect]
     Active Substance: EPINEPHRINE
     Dosage: 0.06 UG/KG (LOW?DOSE)
  3. FRUSEMIDE ALMUS [Concomitant]
     Indication: HYPERKALAEMIA
     Dosage: 40 MG (A SINGLE BOLUS)
  4. POTASSIUM [Concomitant]
     Active Substance: POTASSIUM
     Indication: ELECTROLYTE SUBSTITUTION THERAPY
     Dosage: 7 MMOL/L

REACTIONS (1)
  - Circulatory collapse [Unknown]
